FAERS Safety Report 15687401 (Version 1)
Quarter: 2018Q4

REPORT INFORMATION
  Report Type: Spontaneous
  Country: FI (occurrence: FI)
  Receive Date: 20181205
  Receipt Date: 20181205
  Transmission Date: 20190205
  Serious: Yes (Other)
  Sender: FDA-Public Use
  Company Number: FI-ABBVIE-18S-055-2575952-00

PATIENT
  Sex: Female
  Weight: 55 kg

DRUGS (1)
  1. DUODOPA [Suspect]
     Active Substance: CARBIDOPA\LEVODOPA
     Indication: PRODUCT USED FOR UNKNOWN INDICATION
     Route: 050
     Dates: start: 20141001

REACTIONS (5)
  - Peripheral swelling [Recovered/Resolved]
  - Pain in extremity [Recovered/Resolved]
  - Foot deformity [Recovered/Resolved]
  - Muscular weakness [Not Recovered/Not Resolved]
  - Toe amputation [Recovered/Resolved]

NARRATIVE: CASE EVENT DATE: 2016
